FAERS Safety Report 21858623 (Version 1)
Quarter: 2023Q1

REPORT INFORMATION
  Report Type: Spontaneous
  Country: US (occurrence: US)
  Receive Date: 20230113
  Receipt Date: 20230113
  Transmission Date: 20230418
  Serious: No
  Sender: FDA-Public Use
  Company Number: US-UNITED THERAPEUTICS-UNT-2022-029892

PATIENT
  Sex: Female
  Weight: 78.005 kg

DRUGS (4)
  1. REMODULIN [Suspect]
     Active Substance: TREPROSTINIL
     Indication: Pulmonary arterial hypertension
     Dosage: 0.029 ?G/KG, CONTINUING
     Route: 058
     Dates: start: 2022
  2. REMODULIN [Suspect]
     Active Substance: TREPROSTINIL
     Dosage: 0.042 ?G/KG, CONTINUING
     Route: 058
  3. REMODULIN [Suspect]
     Active Substance: TREPROSTINIL
     Dosage: UNK, CONTINUING
     Route: 058
     Dates: start: 20220311
  4. AMBRISENTAN [Concomitant]
     Active Substance: AMBRISENTAN
     Indication: Product used for unknown indication
     Route: 065

REACTIONS (6)
  - Infusion site pain [Recovering/Resolving]
  - Fatigue [Unknown]
  - Malaise [Unknown]
  - Infusion site swelling [Unknown]
  - Device use issue [Unknown]
  - Device dislocation [Unknown]

NARRATIVE: CASE EVENT DATE: 20220101
